FAERS Safety Report 11498458 (Version 1)
Quarter: 2015Q3

REPORT INFORMATION
  Report Type: Spontaneous
  Country: US (occurrence: US)
  Receive Date: 20150911
  Receipt Date: 20150911
  Transmission Date: 20151125
  Serious: Yes (Other)
  Sender: FDA-Public Use
  Company Number: US-TAKEDA-TPA2011A08755

PATIENT

DRUGS (10)
  1. VICTOZA [Concomitant]
     Active Substance: LIRAGLUTIDE
     Indication: DIABETES MELLITUS
     Dosage: 18 MG/3ML
     Dates: start: 2011, end: 2013
  2. METFORMIN [Concomitant]
     Active Substance: METFORMIN HYDROCHLORIDE
     Dosage: 500 MG, UNK
     Dates: start: 2004, end: 2010
  3. BYETTA [Concomitant]
     Active Substance: EXENATIDE
     Dosage: 20 MCG, UNK
     Dates: start: 2004
  4. GLUCOPHAGE [Concomitant]
     Active Substance: METFORMIN HYDROCHLORIDE
     Dosage: 1000 MG, UNK
     Dates: start: 2004, end: 2007
  5. ACTOS [Suspect]
     Active Substance: PIOGLITAZONE HYDROCHLORIDE
     Indication: TYPE 2 DIABETES MELLITUS
     Dosage: UNK
     Route: 048
     Dates: start: 2002, end: 20111004
  6. BYETTA [Concomitant]
     Active Substance: EXENATIDE
     Dosage: 10 MCG, UNK
     Dates: start: 2011
  7. VICTOZA [Concomitant]
     Active Substance: LIRAGLUTIDE
     Dosage: 18 MG/3ML, UNK
     Dates: start: 2011, end: 2012
  8. ACTOS [Suspect]
     Active Substance: PIOGLITAZONE HYDROCHLORIDE
     Dosage: 30 MG, UNK
     Route: 048
     Dates: start: 2005, end: 20111104
  9. BYETTA [Concomitant]
     Active Substance: EXENATIDE
     Dosage: 20 MG, UNK
     Dates: start: 2004
  10. AMARYL [Concomitant]
     Active Substance: GLIMEPIRIDE
     Dosage: 2 MG, UNK
     Dates: start: 2005, end: 2007

REACTIONS (1)
  - Bladder cancer [Unknown]

NARRATIVE: CASE EVENT DATE: 20080806
